FAERS Safety Report 7985787-3 (Version None)
Quarter: 2011Q4

REPORT INFORMATION
  Report Type: 
  Country: None (occurrence: None)
  Receive Date: 20111216
  Receipt Date: 20111213
  Transmission Date: 20120403
  Serious: Yes (Other)
  Sender: FDA-Public Use
  Company Number: JP-PFIZER INC-2010089942

PATIENT
  Age: 66 Year
  Sex: Male
  Weight: 61 kg

DRUGS (6)
  1. VARENICLINE TARTRATE [Suspect]
     Dosage: 1 MG/DAY
     Dates: start: 20100629, end: 20100701
  2. AMLODIPINE BESYLATE [Suspect]
     Indication: HYPERTENSION
     Dosage: 10 MG, 1X/DAY
     Route: 048
     Dates: start: 20100319
  3. VARENICLINE TARTRATE [Suspect]
     Dosage: 2 MG/DAY
     Dates: start: 20100622, end: 20100628
  4. VARENICLINE TARTRATE [Suspect]
     Indication: NICOTINE DEPENDENCE
     Dosage: 1 MG, 1X/DAY
     Dates: start: 20100618, end: 20100621
  5. VARENICLINE TARTRATE [Suspect]
     Indication: SMOKING CESSATION THERAPY
     Dosage: 0.5 MG, 1X/DAY
     Route: 048
     Dates: start: 20100615, end: 20100617
  6. FELBINAC [Suspect]
     Indication: MUSCLE SPASMS
     Dosage: UNK
     Dates: start: 20100629, end: 20100702

REACTIONS (13)
  - SKIN EXFOLIATION [None]
  - BLISTER [None]
  - MUSCLE SPASMS [None]
  - RASH GENERALISED [None]
  - ABDOMINAL DISCOMFORT [None]
  - STEVENS-JOHNSON SYNDROME [None]
  - URTICARIA [None]
  - PRURITUS [None]
  - HEAD DISCOMFORT [None]
  - APPLICATION SITE RASH [None]
  - OEDEMA PERIPHERAL [None]
  - PYREXIA [None]
  - LIP SWELLING [None]
